FAERS Safety Report 7286012-1 (Version None)
Quarter: 2011Q1

REPORT INFORMATION
  Report Type: 
  Country: None (occurrence: None)
  Receive Date: 20110210
  Receipt Date: 20110207
  Transmission Date: 20110831
  Serious: Yes (Other)
  Sender: FDA-Public Use
  Company Number: CHPA2011US02436

PATIENT
  Sex: Male

DRUGS (3)
  1. COUMADIN [Concomitant]
     Indication: ANTICOAGULANT THERAPY
     Route: 048
  2. VOLTAREN [Suspect]
     Dosage: UNK, UNK
     Route: 061
  3. CELEBREX [Concomitant]
     Route: 048

REACTIONS (2)
  - HAEMATOCHEZIA [None]
  - DRUG ADMINISTERED AT INAPPROPRIATE SITE [None]
